FAERS Safety Report 10812296 (Version 1)
Quarter: 2015Q1

REPORT INFORMATION
  Report Type: Spontaneous
  Country: US (occurrence: None)
  Receive Date: 20150212
  Receipt Date: 20150212
  Transmission Date: 20150721
  Serious: No
  Sender: FDA-Public Use
  Company Number: None

PATIENT
  Age: 65 Year
  Sex: Female
  Weight: 63.5 kg

DRUGS (5)
  1. CALCIUM [Concomitant]
     Active Substance: CALCIUM
  2. VITAMIN D [Concomitant]
     Active Substance: CHOLECALCIFEROL
  3. FORTEO [Suspect]
     Active Substance: TERIPARATIDE
     Indication: FALL
     Dosage: PRE-FILLED PEN; GIVEN INTO/UNDER THE SKIN
  4. FORTEO [Suspect]
     Active Substance: TERIPARATIDE
     Indication: OSTEOPOROSIS
     Dosage: PRE-FILLED PEN; GIVEN INTO/UNDER THE SKIN
  5. FORTEO [Suspect]
     Active Substance: TERIPARATIDE
     Indication: BONE DISORDER
     Dosage: PRE-FILLED PEN; GIVEN INTO/UNDER THE SKIN

REACTIONS (2)
  - Fatigue [None]
  - Muscular weakness [None]

NARRATIVE: CASE EVENT DATE: 20150210
